FAERS Safety Report 8851902 (Version 3)
Quarter: 2012Q4

REPORT INFORMATION
  Report Type: Report from Study
  Country: FR (occurrence: FR)
  Receive Date: 20121022
  Receipt Date: 20121227
  Transmission Date: 20130627
  Serious: Yes (Hospitalization)
  Sender: FDA-Public Use
  Company Number: PHHO2012FR015178

PATIENT
  Age: 89 Year
  Sex: Female
  Weight: 50 kg

DRUGS (4)
  1. AMN107 [Suspect]
     Indication: CHRONIC MYELOID LEUKAEMIA
     Dosage: 400 mg, QD
     Route: 048
     Dates: start: 20080227
  2. PROPRANOLOL [Concomitant]
     Indication: HYPERTENSION
  3. TAHOR [Concomitant]
     Indication: HYPERTRIGLYCERIDAEMIA
     Dates: start: 20111215
  4. SERESTA [Concomitant]
     Indication: PROPHYLAXIS
     Dates: start: 20111219

REACTIONS (2)
  - Cognitive disorder [Recovered/Resolved]
  - Systemic inflammatory response syndrome [Recovered/Resolved]
